FAERS Safety Report 17536544 (Version 3)
Quarter: 2020Q2

REPORT INFORMATION
  Report Type: Spontaneous
  Country: US (occurrence: US)
  Receive Date: 20200313
  Receipt Date: 20200401
  Transmission Date: 20200713
  Serious: No
  Sender: FDA-Public Use
  Company Number: US-HORIZON-ACT-0120-2020

PATIENT
  Age: 29 Year
  Sex: Male

DRUGS (7)
  1. ACTIMMUNE [Suspect]
     Active Substance: INTERFERON GAMMA-1B
     Indication: CHRONIC GRANULOMATOUS DISEASE
     Dosage: 0.485ML THREE TIMES A WEEK
     Dates: start: 20191120, end: 20200318
  2. LEUCOVORIN. [Concomitant]
     Active Substance: LEUCOVORIN
     Dosage: 2.5 MG THREE TIMES WEEKLY
  3. NOXAFIL [Concomitant]
     Active Substance: POSACONAZOLE
     Dosage: 900 MG DAILY
  4. DURICEF [Concomitant]
     Active Substance: CEFADROXIL
     Dosage: BID
  5. OMEPRAZOLE. [Concomitant]
     Active Substance: OMEPRAZOLE
  6. PREDNISONE. [Concomitant]
     Active Substance: PREDNISONE
     Dosage: 20 MG QOD
  7. BACTRIM DS [Concomitant]
     Active Substance: SULFAMETHOXAZOLE\TRIMETHOPRIM
     Dosage: BID

REACTIONS (4)
  - Treatment noncompliance [Recovered/Resolved]
  - Mobility decreased [Recovered/Resolved]
  - Pyrexia [Unknown]
  - Muscle spasms [Recovered/Resolved]

NARRATIVE: CASE EVENT DATE: 202002
